FAERS Safety Report 7648496-6 (Version None)
Quarter: 2011Q3

REPORT INFORMATION
  Report Type: 
  Country: None (occurrence: None)
  Receive Date: 20110801
  Receipt Date: 20110727
  Transmission Date: 20111222
  Serious: Yes (Hospitalization)
  Sender: FDA-Public Use
  Company Number: FR-GILEAD-2011-0042316

PATIENT
  Sex: Male

DRUGS (3)
  1. NORVIR [Suspect]
     Route: 048
     Dates: start: 20100511
  2. REYATAZ [Suspect]
     Route: 048
     Dates: start: 20100511, end: 20110324
  3. TRUVADA [Suspect]
     Indication: HIV INFECTION
     Route: 048
     Dates: start: 20100511, end: 20110324

REACTIONS (2)
  - CALCULUS URETERIC [None]
  - RENAL COLIC [None]
